FAERS Safety Report 18427370 (Version 2)
Quarter: 2020Q4

REPORT INFORMATION
  Report Type: Spontaneous
  Country: US (occurrence: US)
  Receive Date: 20201026
  Receipt Date: 20201103
  Transmission Date: 20210114
  Serious: No
  Sender: FDA-Public Use
  Company Number: US-JNJFOC-20201031120

PATIENT
  Sex: Male

DRUGS (2)
  1. TREMFYA [Suspect]
     Active Substance: GUSELKUMAB
     Indication: PRODUCT USED FOR UNKNOWN INDICATION
     Route: 065
  2. TREMFYA [Suspect]
     Active Substance: GUSELKUMAB

REACTIONS (3)
  - Product dose omission issue [Unknown]
  - Accidental exposure to product [Unknown]
  - Device issue [Unknown]
